FAERS Safety Report 12632828 (Version 2)
Quarter: 2016Q3

REPORT INFORMATION
  Report Type: Spontaneous
  Country: US (occurrence: US)
  Receive Date: 20160808
  Receipt Date: 20160808
  Transmission Date: 20161109
  Serious: No
  Sender: FDA-Public Use
  Company Number: US-BEH-2015057156

PATIENT
  Sex: Female
  Weight: 114 kg

DRUGS (40)
  1. HIZENTRA [Suspect]
     Active Substance: HUMAN IMMUNOGLOBULIN G
     Route: 058
  2. HIZENTRA [Suspect]
     Active Substance: HUMAN IMMUNOGLOBULIN G
     Indication: MULTIPLE SCLEROSIS
     Route: 058
  3. SINGULAIR [Concomitant]
     Active Substance: MONTELUKAST SODIUM
  4. TYLENOL EX-STR [Concomitant]
  5. COPAXONE [Concomitant]
     Active Substance: GLATIRAMER ACETATE
  6. CEFDINIR. [Concomitant]
     Active Substance: CEFDINIR
  7. CENTRUM ULTRA WOMEN^S [Concomitant]
     Active Substance: VITAMINS
  8. IRON 325 [Concomitant]
  9. OXYGEN. [Concomitant]
     Active Substance: OXYGEN
  10. EPIPEN [Concomitant]
     Active Substance: EPINEPHRINE
  11. LASIX [Concomitant]
     Active Substance: FUROSEMIDE
  12. IMODIUM A-D [Concomitant]
     Active Substance: LOPERAMIDE HYDROCHLORIDE
  13. HIZENTRA [Suspect]
     Active Substance: HUMAN IMMUNOGLOBULIN G
     Indication: IMMUNODEFICIENCY COMMON VARIABLE
     Route: 058
  14. AUGMENTIN [Concomitant]
     Active Substance: AMOXICILLIN\CLAVULANATE POTASSIUM
  15. LOSARTAN POTASSIUM. [Concomitant]
     Active Substance: LOSARTAN POTASSIUM
  16. METFORMIN [Concomitant]
     Active Substance: METFORMIN HYDROCHLORIDE
  17. REQUIP [Concomitant]
     Active Substance: ROPINIROLE HYDROCHLORIDE
  18. LIPITOR [Concomitant]
     Active Substance: ATORVASTATIN CALCIUM
  19. HIZENTRA [Suspect]
     Active Substance: HUMAN IMMUNOGLOBULIN G
     Route: 058
  20. CYMBALTA [Concomitant]
     Active Substance: DULOXETINE HYDROCHLORIDE
  21. POTASSIUM [Concomitant]
     Active Substance: POTASSIUM
  22. MAGNESIUM OXIDE. [Concomitant]
     Active Substance: MAGNESIUM OXIDE
  23. DIPHENHYDRAMINE. [Concomitant]
     Active Substance: DIPHENHYDRAMINE
  24. PATANASE [Concomitant]
     Active Substance: OLOPATADINE HYDROCHLORIDE
  25. ROPINIROLE ER [Concomitant]
     Active Substance: ROPINIROLE
  26. TRIAMCINOLONE ACETONIDE. [Concomitant]
     Active Substance: TRIAMCINOLONE ACETONIDE
  27. SYMBICORT [Concomitant]
     Active Substance: BUDESONIDE\FORMOTEROL FUMARATE DIHYDRATE
  28. PRILOSEC [Concomitant]
     Active Substance: OMEPRAZOLE MAGNESIUM
  29. ATORVASTATIN [Concomitant]
     Active Substance: ATORVASTATIN
  30. BACTROBAN [Concomitant]
     Active Substance: MUPIROCIN\MUPIROCIN CALCIUM
  31. NEURONTIN [Concomitant]
     Active Substance: GABAPENTIN
  32. ALBUTEROL SULFATE. [Concomitant]
     Active Substance: ALBUTEROL SULFATE
  33. SALINE NASAL SPRAY [Concomitant]
     Active Substance: SODIUM CHLORIDE
  34. IPRATROPIUM BROMIDE. [Concomitant]
     Active Substance: IPRATROPIUM BROMIDE
  35. ATROVENT [Concomitant]
     Active Substance: IPRATROPIUM BROMIDE
  36. OCEAN SINUS IRRIGATION [Concomitant]
  37. TOBRADEX [Concomitant]
     Active Substance: DEXAMETHASONE\TOBRAMYCIN
  38. NASACORT [Concomitant]
     Active Substance: TRIAMCINOLONE ACETONIDE
  39. HUMALOG [Concomitant]
     Active Substance: INSULIN LISPRO
  40. BACLOFEN. [Concomitant]
     Active Substance: BACLOFEN

REACTIONS (2)
  - Sinusitis [Unknown]
  - Bronchitis [Unknown]
